FAERS Safety Report 24450566 (Version 1)
Quarter: 2024Q4

REPORT INFORMATION
  Report Type: Spontaneous
  Country: US (occurrence: None)
  Receive Date: 20241016
  Receipt Date: 20241016
  Transmission Date: 20250115
  Serious: Yes (Other)
  Sender: Public
  Company Number: None

PATIENT
  Age: 71 Year
  Sex: Female
  Weight: 90.54 kg

DRUGS (25)
  1. TEPEZZA [Suspect]
     Active Substance: TEPROTUMUMAB-TRBW
     Indication: Endocrine ophthalmopathy
     Dosage: OTHER FREQUENCY : 8 INFUSIONS;?
     Route: 042
     Dates: start: 20240415, end: 20240715
  2. AZATHIOPRINE [Concomitant]
     Active Substance: AZATHIOPRINE
  3. DESVENLAFAXINE [Concomitant]
     Active Substance: DESVENLAFAXINE
  4. FENOFIBRATE [Concomitant]
     Active Substance: FENOFIBRATE
  5. FUROSEMIDE [Concomitant]
     Active Substance: FUROSEMIDE
  6. HYDRALAZINE [Concomitant]
     Active Substance: HYDRALAZINE HYDROCHLORIDE
  7. HYDROCODONE BITARTRATE AND ACETAMINOPHEN [Concomitant]
     Active Substance: ACETAMINOPHEN\HYDROCODONE BITARTRATE
  8. Isosorbide Mono [Concomitant]
  9. LEVOTHYROXINE [Concomitant]
     Active Substance: LEVOTHYROXINE
  10. LIOTHYRONINE [Concomitant]
     Active Substance: LIOTHYRONINE
  11. LOSARTAN POTASSIUM [Concomitant]
     Active Substance: LOSARTAN POTASSIUM
  12. TRAZODONE [Concomitant]
     Active Substance: TRAZODONE HYDROCHLORIDE
  13. DEVICE [Concomitant]
     Active Substance: DEVICE
  14. Covid 19 immunizations [Concomitant]
  15. ARTICHOKE [Concomitant]
     Active Substance: ARTICHOKE
  16. CALCIUM CITRATE [Concomitant]
     Active Substance: CALCIUM CITRATE
  17. FOLATE SODIUM [Concomitant]
     Active Substance: FOLATE SODIUM
  18. MAGNESIUM GLYCINATE [Concomitant]
     Active Substance: MAGNESIUM GLYCINATE
  19. DIETARY SUPPLEMENT\HERBALS\MILK THISTLE [Concomitant]
     Active Substance: MILK THISTLE
  20. Potassium Glycinate [Concomitant]
  21. VITAMIN D [Concomitant]
     Active Substance: VITAMIN D NOS
  22. VITAMIN E [Concomitant]
     Active Substance: .ALPHA.-TOCOPHEROL
  23. ASPIRIN [Concomitant]
     Active Substance: ASPIRIN
  24. Artificial tears [Concomitant]
  25. VICKS NYQUIL [Concomitant]
     Active Substance: ACETAMINOPHEN\DEXTROMETHORPHAN HYDROBROMIDE\DOXYLAMINE SUCCINATE

REACTIONS (3)
  - Eye pain [None]
  - Visual impairment [None]
  - Hypoacusis [None]

NARRATIVE: CASE EVENT DATE: 20240715
